FAERS Safety Report 7345184-0 (Version None)
Quarter: 2011Q1

REPORT INFORMATION
  Report Type: 
  Country: None (occurrence: None)
  Receive Date: 20110310
  Receipt Date: 20110301
  Transmission Date: 20110831
  Serious: Yes (Other)
  Sender: FDA-Public Use
  Company Number: US-ASTRAZENECA-2011SE11476

PATIENT
  Age: 54 Year
  Sex: Female
  Weight: 54.9 kg

DRUGS (12)
  1. HYDROCHLOROTHIAZIDE [Concomitant]
     Indication: HYPERTENSION
     Route: 048
  2. TIMOLOL MALEATE [Suspect]
     Indication: EYE INJURY
     Dosage: 0.5 PERCENT/ 15 ML ONE DROP EACH EYE TWO TIMES A DAILY
     Route: 047
  3. ARTHROTEC [Suspect]
     Indication: PAIN
     Dosage: 200MCG/75MG TWO TIMES A DAY
     Route: 048
     Dates: start: 20100101
  4. GEMFIBROZIL [Concomitant]
     Indication: HYPERCHOLESTEROLAEMIA
     Route: 048
  5. CALCIUM [Concomitant]
     Route: 048
  6. NEXIUM [Suspect]
     Indication: GASTRIC DISORDER
     Route: 048
     Dates: end: 20110101
  7. XALATAN [Suspect]
     Indication: ANGLE CLOSURE GLAUCOMA
     Dosage: 125G/2.5ML ONE DROP IN EACH EYE ONCE DAILY
     Route: 047
  8. XALATAN [Suspect]
     Indication: EYE INJURY
     Dosage: 125G/2.5ML ONE DROP IN EACH EYE ONCE DAILY
     Route: 047
  9. TOPROL-XL [Concomitant]
     Indication: HYPERTENSION
     Route: 048
  10. ARTHROTEC [Suspect]
     Indication: BONE DISORDER
     Dosage: 200MCG/75MG TWO TIMES A DAY
     Route: 048
     Dates: start: 20100101
  11. TIMOLOL MALEATE [Suspect]
     Indication: GLAUCOMA
     Dosage: 0.5 PERCENT/ 15 ML ONE DROP EACH EYE TWO TIMES A DAILY
     Route: 047
  12. CRESTOR [Concomitant]
     Indication: HYPERCHOLESTEROLAEMIA
     Route: 048

REACTIONS (2)
  - INTRAOCULAR PRESSURE INCREASED [None]
  - GASTROOESOPHAGEAL REFLUX DISEASE [None]
